FAERS Safety Report 7792952 (Version 3)
Quarter: 2014Q1

REPORT INFORMATION
  Report Type: Spontaneous
  Country: FR (occurrence: FR)
  Receive Date: 20110131
  Receipt Date: 20140115
  Transmission Date: 20141002
  Serious: Yes (Hospitalization, Other)
  Sender: FDA-Public Use
  Company Number: FR-PFIZER INC-2011016152

PATIENT
  Age: 23 Year
  Sex: Female

DRUGS (2)
  1. SALAZOPYRINE [Suspect]
     Indication: ARTHRITIS REACTIVE
     Dosage: UNK
     Route: 048
     Dates: start: 20101023, end: 20101121
  2. EFFERALGAN CODEINE [Concomitant]
     Dosage: UNK
     Route: 048
     Dates: start: 20101118, end: 20101118

REACTIONS (7)
  - Drug reaction with eosinophilia and systemic symptoms [Recovered/Resolved]
  - Rash maculo-papular [Recovered/Resolved]
  - Eosinophilia [Recovered/Resolved]
  - Transaminases increased [Recovered/Resolved]
  - Lymphadenopathy [Unknown]
  - Blood creatinine increased [Unknown]
  - Pyrexia [Unknown]
